FAERS Safety Report 9437386 (Version 2)
Quarter: 2013Q4

REPORT INFORMATION
  Report Type: Spontaneous
  Country: IT (occurrence: IT)
  Receive Date: 20130802
  Receipt Date: 20131002
  Transmission Date: 20140711
  Serious: Yes (Hospitalization, Other)
  Sender: FDA-Public Use
  Company Number: IT-TEVA-421321ISR

PATIENT
  Age: 74 Year
  Sex: Male

DRUGS (9)
  1. CLOPIDOGREL [Suspect]
     Indication: DEEP VEIN THROMBOSIS
     Dosage: 75 MILLIGRAM DAILY;
     Route: 048
     Dates: start: 20111001, end: 20130605
  2. SELEDIE 15200IU/0,8ML [Suspect]
     Indication: DEEP VEIN THROMBOSIS
     Dosage: 1 DOSAGE FORMS DAILY;
     Route: 058
     Dates: start: 20111001, end: 20130605
  3. ONCOCARBIDE 500 MG [Concomitant]
  4. TORVAST 20 MG [Concomitant]
  5. NORVASC 10 MG [Concomitant]
  6. FERROGRAD 105 MG [Concomitant]
     Indication: IRON DEFICIENCY ANAEMIA
  7. FOLINA 5 MG [Concomitant]
     Dosage: SOFT CAPSULE
  8. METFORMINA CLORIDRATO [Concomitant]
     Indication: TYPE 2 DIABETES MELLITUS
  9. OMEPRAZOLO [Concomitant]
     Indication: PROPHYLAXIS

REACTIONS (3)
  - Melaena [Recovered/Resolved]
  - Haematemesis [Recovered/Resolved]
  - Gastritis atrophic [Recovered/Resolved]
